FAERS Safety Report 18301338 (Version 9)
Quarter: 2021Q1

REPORT INFORMATION
  Report Type: Report from Study
  Country: US (occurrence: US)
  Receive Date: 20200923
  Receipt Date: 20210309
  Transmission Date: 20210419
  Serious: Yes (Hospitalization, Other)
  Sender: FDA-Public Use
  Company Number: NVSC2020US257439

PATIENT
  Age: 69 Year
  Sex: Female
  Weight: 114.29 kg

DRUGS (1)
  1. MAYZENT [Suspect]
     Active Substance: SIPONIMOD
     Indication: MULTIPLE SCLEROSIS
     Dosage: 2 MG, QD
     Route: 048
     Dates: start: 20200919, end: 20200919

REACTIONS (8)
  - Rib fracture [Recovering/Resolving]
  - Fibula fracture [Recovering/Resolving]
  - Fall [Recovering/Resolving]
  - Lower limb fracture [Unknown]
  - Femur fracture [Recovering/Resolving]
  - Palpitations [Recovered/Resolved]
  - Somnolence [Recovered/Resolved]
  - Pain in extremity [Recovered/Resolved]

NARRATIVE: CASE EVENT DATE: 20200919
